FAERS Safety Report 9857212 (Version 3)
Quarter: 2014Q1

REPORT INFORMATION
  Report Type: Spontaneous
  Country: DE (occurrence: DE)
  Receive Date: 20140130
  Receipt Date: 20140324
  Transmission Date: 20141002
  Serious: Yes (Other)
  Sender: FDA-Public Use
  Company Number: DE-BAUSCH-BL-2014-000549

PATIENT
  Age: 99 Year
  Sex: Female

DRUGS (2)
  1. TIM-OPHTAL 0.5% SINE [Suspect]
     Indication: GLAUCOMA
     Route: 047
     Dates: start: 2004, end: 20140113
  2. AXURA MEMANTIN [Concomitant]
     Indication: DEMENTIA ALZHEIMER^S TYPE

REACTIONS (2)
  - Heart rate decreased [Recovering/Resolving]
  - Dry eye [Recovered/Resolved]
